FAERS Safety Report 7400637-1 (Version None)
Quarter: 2011Q2

REPORT INFORMATION
  Report Type: 
  Country: None (occurrence: None)
  Receive Date: 20110407
  Receipt Date: 20110330
  Transmission Date: 20111010
  Serious: Yes (Death, Other)
  Sender: FDA-Public Use
  Company Number: US-GENZYME-HECT-1000131

PATIENT
  Age: 68 Year
  Sex: Female

DRUGS (1)
  1. HECTOROL [Suspect]
     Indication: HYPERPARATHYROIDISM SECONDARY
     Dosage: UNK
     Route: 042
     Dates: start: 20110304

REACTIONS (6)
  - LOSS OF CONSCIOUSNESS [None]
  - FEELING ABNORMAL [None]
  - RESPIRATORY ARREST [None]
  - THROAT TIGHTNESS [None]
  - ANAPHYLACTIC REACTION [None]
  - SWELLING [None]
